FAERS Safety Report 13453014 (Version 2)
Quarter: 2020Q1

REPORT INFORMATION
  Report Type: Spontaneous
  Country: US (occurrence: US)
  Receive Date: 20170418
  Receipt Date: 20200108
  Transmission Date: 20200409
  Serious: No
  Sender: FDA-Public Use
  Company Number: US-SHIRE-US201708631

PATIENT
  Sex: Male

DRUGS (2)
  1. VPRIV [Suspect]
     Active Substance: VELAGLUCERASE ALFA
     Dosage: 4000 IU, 1X/2WKS
     Route: 041
     Dates: start: 20130730
  2. VPRIV [Suspect]
     Active Substance: VELAGLUCERASE ALFA
     Indication: GAUCHER^S DISEASE
     Dosage: 4000 IU, 1X/2WKS
     Route: 041
     Dates: start: 20130729

REACTIONS (2)
  - No adverse event [Unknown]
  - Product dose omission [Unknown]
